FAERS Safety Report 24659365 (Version 1)
Quarter: 2024Q4

REPORT INFORMATION
  Report Type: Spontaneous
  Country: PL (occurrence: PL)
  Receive Date: 20241125
  Receipt Date: 20241125
  Transmission Date: 20250115
  Serious: Yes (Hospitalization, Other)
  Sender: BAYER HEALTHCARE PHARMACEUTICALS INC.
  Company Number: PL-BAYER-2024A165916

PATIENT
  Age: 78 Year
  Sex: Female

DRUGS (1)
  1. ULTRAVIST [Suspect]
     Active Substance: IOPROMIDE
     Indication: Computerised tomogram head
     Dosage: 50 ML, ONCE
     Dates: start: 20241118, end: 20241118

REACTIONS (5)
  - Malaise [None]
  - Abdominal discomfort [None]
  - Nausea [None]
  - Vomiting [None]
  - Vascular access complication [None]

NARRATIVE: CASE EVENT DATE: 20241118
